FAERS Safety Report 9625770 (Version 2)
Quarter: 2013Q4

REPORT INFORMATION
  Report Type: Report from Study
  Country: DE (occurrence: DE)
  Receive Date: 20131016
  Receipt Date: 20131101
  Transmission Date: 20140711
  Serious: Yes (Life-Threatening, Hospitalization, Disabling, Other)
  Sender: FDA-Public Use
  Company Number: PHHY2013DE115748

PATIENT
  Sex: Female

DRUGS (5)
  1. FTY 720 [Suspect]
     Indication: MULTIPLE SCLEROSIS
     Dosage: 0.5 MG, QD
     Route: 048
     Dates: start: 20121211
  2. NUVARING [Concomitant]
     Indication: CONTRACEPTION
     Dates: start: 200404
  3. CYMBALTA [Concomitant]
     Dosage: 30 MG, UNK
     Route: 048
     Dates: start: 200706
  4. NITROFURANTOIN [Concomitant]
     Dosage: 100 MG, UNK
     Dates: start: 201110
  5. METHYLPREDNISOLONE [Concomitant]
     Indication: MULTIPLE SCLEROSIS RELAPSE
     Dosage: 1000 MG, UNK
     Route: 042
     Dates: start: 20130402, end: 20130405

REACTIONS (10)
  - Cerebral infarction [Not Recovered/Not Resolved]
  - Carotid artery dissection [Not Recovered/Not Resolved]
  - Sensory loss [Unknown]
  - Dysphagia [Unknown]
  - Motor dysfunction [Unknown]
  - Headache [Unknown]
  - Dysarthria [Unknown]
  - Gait disturbance [Unknown]
  - Fall [Unknown]
  - Pneumonia [Not Recovered/Not Resolved]
